FAERS Safety Report 8130969 (Version 4)
Quarter: 2013Q2

REPORT INFORMATION
  Report Type: Spontaneous
  Country: US (occurrence: US)
  Receive Date: 20110912
  Receipt Date: 20130409
  Transmission Date: 20140414
  Serious: Yes (Hospitalization)
  Sender: FDA-Public Use
  Company Number: US-BAYER-2011-082059

PATIENT
  Age: 26 Year
  Sex: Female
  Weight: 68 kg

DRUGS (8)
  1. YASMIN [Suspect]
     Indication: ORAL CONTRACEPTION
     Dates: start: 200902, end: 200911
  2. ZYRTEC [Concomitant]
     Dosage: 10 MG, QD
     Route: 048
  3. FIORICET [Concomitant]
     Route: 048
  4. Z-PAK [Concomitant]
     Dosage: 250 MG, QD
     Route: 048
  5. TYLENOL [Concomitant]
  6. B12 INJECTIONS [Concomitant]
  7. PRENATAL VITAMINS [Concomitant]
  8. FOLIC ACID [Concomitant]

REACTIONS (9)
  - Cerebrovascular accident [None]
  - Carotid artery dissection [None]
  - Deep vein thrombosis [None]
  - Cerebral thrombosis [None]
  - Hemiplegia [None]
  - Nervous system disorder [None]
  - Emotional disorder [None]
  - Injury [None]
  - Pain [None]
